FAERS Safety Report 19013085 (Version 1)
Quarter: 2021Q1

REPORT INFORMATION
  Report Type: Spontaneous
  Country: US (occurrence: US)
  Receive Date: 20210316
  Receipt Date: 20210316
  Transmission Date: 20210420
  Serious: No
  Sender: FDA-Public Use
  Company Number: US-FDC LIMITED-2020RIS00372

PATIENT
  Age: 78 Year
  Sex: Male
  Weight: 81.63 kg

DRUGS (3)
  1. OFLOXACIN. [Suspect]
     Active Substance: OFLOXACIN
     Indication: CATARACT OPERATION
     Dosage: 1 DROP, 2X/DAY
     Route: 047
     Dates: start: 20200817
  2. KETOROLAC [Suspect]
     Active Substance: KETOROLAC TROMETHAMINE
     Indication: CATARACT OPERATION
     Dosage: UNK
  3. PREDNISOLONE. [Suspect]
     Active Substance: PREDNISOLONE
     Indication: CATARACT OPERATION
     Dosage: UNK

REACTIONS (1)
  - Eye pain [Not Recovered/Not Resolved]

NARRATIVE: CASE EVENT DATE: 202008
